FAERS Safety Report 21714749 (Version 1)
Quarter: 2022Q4

REPORT INFORMATION
  Report Type: Spontaneous
  Country: US (occurrence: None)
  Receive Date: 20221209
  Receipt Date: 20221209
  Transmission Date: 20230112
  Serious: Yes (Hospitalization)
  Sender: FDA-Public Use
  Company Number: None

PATIENT
  Sex: Male
  Weight: 70.03 kg

DRUGS (27)
  1. MAVYRET [Suspect]
     Active Substance: GLECAPREVIR\PIBRENTASVIR
     Indication: Hepatitis C
     Dosage: FREQUENCY : DAILY;?
     Route: 048
     Dates: start: 20200219, end: 20200514
  2. ALENDRONATE [Concomitant]
     Active Substance: ALENDRONATE SODIUM
  3. AMODARONE [Concomitant]
  4. ASPIRIN [Concomitant]
     Active Substance: ASPIRIN
  5. CALCIUM CITRATE [Concomitant]
     Active Substance: CALCIUM CITRATE
  6. VITAMIN D3 [Concomitant]
     Active Substance: CHOLECALCIFEROL
  7. CEFEPIME [Concomitant]
     Active Substance: CEFEPIME HYDROCHLORIDE
  8. DAPSONE [Concomitant]
     Active Substance: DAPSONE
  9. ERGOCALCIFEROL [Concomitant]
     Active Substance: ERGOCALCIFEROL
  10. FERROUS SULFATE [Concomitant]
     Active Substance: FERROUS SULFATE
  11. FOLIC ACID [Concomitant]
     Active Substance: FOLIC ACID
  12. FUROSEMIDE [Concomitant]
     Active Substance: FUROSEMIDE
  13. HEPARIN [Concomitant]
     Active Substance: HEPARIN SODIUM
  14. LEVALBUTEROL [Concomitant]
     Active Substance: LEVALBUTEROL
  15. MAGNESIUM OXIDE [Concomitant]
     Active Substance: MAGNESIUM OXIDE
  16. METOCLOPRMIDE [Concomitant]
  17. VITAMINS [Concomitant]
     Active Substance: VITAMINS
  18. MYCOPHENOLATE MOFETIL [Concomitant]
     Active Substance: MYCOPHENOLATE MOFETIL
  19. PANTOPRAZOLE [Concomitant]
     Active Substance: PANTOPRAZOLE
  20. LIQUITEARS [Concomitant]
     Active Substance: POLYVINYL ALCOHOL
  21. REFRESH CLASSIC [Concomitant]
     Active Substance: POLYVINYL ALCOHOL\POVIDONE
  22. PREDNISONE [Concomitant]
     Active Substance: PREDNISONE
  23. ROSUVASTATIN [Concomitant]
     Active Substance: ROSUVASTATIN
  24. SODIUM CHLORIDE [Concomitant]
     Active Substance: SODIUM CHLORIDE
  25. TACROLIMUS [Concomitant]
     Active Substance: TACROLIMUS
  26. TRAMADOL [Concomitant]
     Active Substance: TRAMADOL
  27. VALGANCICLOVIR [Concomitant]
     Active Substance: VALGANCICLOVIR

REACTIONS (6)
  - Palpitations [None]
  - Hypoxia [None]
  - Tachycardia [None]
  - Dyspnoea [None]
  - Pulmonary embolism [None]
  - Troponin increased [None]

NARRATIVE: CASE EVENT DATE: 20220309
